FAERS Safety Report 9990427 (Version 1)
Quarter: 2014Q1

REPORT INFORMATION
  Report Type: Report from Study
  Country: US (occurrence: US)
  Receive Date: 20140310
  Receipt Date: 20140310
  Transmission Date: 20141002
  Serious: No
  Sender: FDA-Public Use
  Company Number: US-ABBVIE-13P-163-1133911-00

PATIENT
  Age: 52 Year
  Sex: Female

DRUGS (4)
  1. HUMIRA [Suspect]
     Indication: CROHN^S DISEASE
     Dates: start: 20130616
  2. CHOLESTYRAMINE [Concomitant]
     Indication: CROHN^S DISEASE
     Dosage: 4 MG 1 PACK PER DAY
  3. DELZICOL [Concomitant]
     Indication: CROHN^S DISEASE
  4. IMODIUM [Concomitant]
     Indication: CROHN^S DISEASE
     Dosage: 2 TO 3 PER DAY

REACTIONS (1)
  - Injection site bruising [Not Recovered/Not Resolved]
